FAERS Safety Report 7766109-X (Version None)
Quarter: 2011Q3

REPORT INFORMATION
  Report Type: 
  Country: None (occurrence: None)
  Receive Date: 20110921
  Receipt Date: 20110912
  Transmission Date: 20111222
  Serious: Yes (Hospitalization, Disabling, Other)
  Sender: FDA-Public Use
  Company Number: US-ASTRAZENECA-2011SE07905

PATIENT
  Age: 78 Year
  Sex: Male

DRUGS (6)
  1. SEROQUEL [Concomitant]
  2. COUMADIN [Concomitant]
  3. ANASTHETICUM [Suspect]
  4. NEXIUM [Concomitant]
  5. TOPROL-XL [Suspect]
     Route: 048
  6. CRESTOR [Suspect]
     Route: 048

REACTIONS (7)
  - INCORRECT DOSE ADMINISTERED [None]
  - PARALYSIS [None]
  - ABASIA [None]
  - APHAGIA [None]
  - MUSCLE SPASMS [None]
  - HALLUCINATION [None]
  - PARKINSON'S DISEASE [None]
